FAERS Safety Report 18435667 (Version 2)
Quarter: 2020Q4

REPORT INFORMATION
  Report Type: Spontaneous
  Country: US (occurrence: US)
  Receive Date: 20201028
  Receipt Date: 20201231
  Transmission Date: 20210114
  Serious: Yes (Other)
  Sender: FDA-Public Use
  Company Number: US-BAYER-2020-226147

PATIENT
  Age: 50 Year
  Sex: Male

DRUGS (3)
  1. KOGENATE FS [Suspect]
     Active Substance: ANTIHEMOPHILIC FACTOR, HUMAN RECOMBINANT
     Dosage: 2300 IU AT UNKNOWN FREQUENCY
     Route: 042
  2. KOGENATE FS [Suspect]
     Active Substance: ANTIHEMOPHILIC FACTOR, HUMAN RECOMBINANT
     Dosage: 2300 UN IV; TREATMENT FOR ELBOW AND FOREARM HEMARTHROSIS
     Route: 042
  3. KOGENATE FS [Suspect]
     Active Substance: ANTIHEMOPHILIC FACTOR, HUMAN RECOMBINANT
     Dosage: 2090 UN; PROPHYLAXIS
     Route: 042

REACTIONS (7)
  - Haemarthrosis [Recovered/Resolved]
  - Haemorrhage [Recovered/Resolved]
  - COVID-19 [None]
  - Pain [None]
  - Back pain [None]
  - Product dose omission issue [None]
  - Pyrexia [None]

NARRATIVE: CASE EVENT DATE: 20201005
